FAERS Safety Report 21424221 (Version 2)
Quarter: 2022Q4

REPORT INFORMATION
  Report Type: Spontaneous
  Country: DE (occurrence: DE)
  Receive Date: 20221007
  Receipt Date: 20221013
  Transmission Date: 20230113
  Serious: Yes (Death, Hospitalization, Other)
  Sender: FDA-Public Use
  Company Number: DE-NOVARTISPH-NVSC2022DE226597

PATIENT

DRUGS (1)
  1. KYMRIAH [Suspect]
     Active Substance: TISAGENLECLEUCEL
     Indication: Diffuse large B-cell lymphoma
     Dosage: UNK, ONCE/SINGLE
     Route: 041
     Dates: start: 20190703, end: 20190703

REACTIONS (22)
  - Cytokine release syndrome [Fatal]
  - Pyrexia [Fatal]
  - Multiple organ dysfunction syndrome [Fatal]
  - Enterococcal infection [Fatal]
  - International normalised ratio increased [Not Recovered/Not Resolved]
  - Activated partial thromboplastin time prolonged [Unknown]
  - Haemophagocytic lymphohistiocytosis [Unknown]
  - Aspartate aminotransferase increased [Not Recovered/Not Resolved]
  - Blood fibrinogen decreased [Recovered/Resolved]
  - Alanine aminotransferase increased [Not Recovered/Not Resolved]
  - Prothrombin level decreased [Not Recovered/Not Resolved]
  - Coagulation factor V level decreased [Not Recovered/Not Resolved]
  - Coagulation factor VIII level increased [Unknown]
  - Coagulation factor IX level decreased [Unknown]
  - Heart rate increased [Unknown]
  - Coagulation factor XIII level decreased [Recovered/Resolved]
  - Antithrombin III deficiency [Recovering/Resolving]
  - Blood phosphorus increased [Not Recovered/Not Resolved]
  - Blood phosphorus decreased [Recovered/Resolved]
  - Blood calcium decreased [Unknown]
  - Serum ferritin increased [Not Recovered/Not Resolved]
  - Prothrombin time prolonged [Not Recovered/Not Resolved]

NARRATIVE: CASE EVENT DATE: 20190701
